FAERS Safety Report 6813615-8 (Version None)
Quarter: 2010Q3

REPORT INFORMATION
  Report Type: 
  Country: None (occurrence: None)
  Receive Date: 20100701
  Receipt Date: 20100621
  Transmission Date: 20110219
  Serious: Yes (Death, Hospitalization, Other)
  Sender: FDA-Public Use
  Company Number: BG-PFIZER INC-2010078687

PATIENT
  Age: 56 Year
  Sex: Female

DRUGS (2)
  1. EPIRUBICIN HYDROCHLORIDE [Suspect]
     Indication: BREAST CANCER METASTATIC
     Dosage: 80 MG/M2
     Dates: start: 20090501
  2. DOCETAXEL [Suspect]
     Indication: BREAST CANCER METASTATIC
     Dosage: 80 MG/M2
     Dates: start: 20090224

REACTIONS (2)
  - BACTERAEMIA [None]
  - NEUTROPENIA [None]
